FAERS Safety Report 8302233-0 (Version None)
Quarter: 2012Q2

REPORT INFORMATION
  Report Type: 
  Country: None (occurrence: None)
  Receive Date: 20120420
  Receipt Date: 20120413
  Transmission Date: 20120825
  Serious: Yes (Other)
  Sender: FDA-Public Use
  Company Number: US-ASTRAZENECA-2012SE24472

PATIENT
  Sex: Male

DRUGS (3)
  1. PRILOSEC [Suspect]
     Indication: DYSPEPSIA
     Route: 048
  2. PRILOSEC [Suspect]
     Indication: COUGH
     Route: 048
  3. FLONASE [Concomitant]

REACTIONS (11)
  - HYPERCHLORHYDRIA [None]
  - COUGH [None]
  - OFF LABEL USE [None]
  - GASTROOESOPHAGEAL REFLUX DISEASE [None]
  - INJURY [None]
  - DRUG INEFFECTIVE FOR UNAPPROVED INDICATION [None]
  - THROAT IRRITATION [None]
  - RIB FRACTURE [None]
  - THROAT TIGHTNESS [None]
  - WEIGHT INCREASED [None]
  - DYSPEPSIA [None]
